FAERS Safety Report 9001316 (Version 2)
Quarter: 2013Q2

REPORT INFORMATION
  Report Type: Spontaneous
  Country: FI (occurrence: FI)
  Receive Date: 20130107
  Receipt Date: 20130416
  Transmission Date: 20140414
  Serious: Yes (Other)
  Sender: FDA-Public Use
  Company Number: PHBS2006FI14465

PATIENT
  Age: 22 Year
  Sex: Female

DRUGS (1)
  1. LAMISIL [Suspect]
     Indication: TINEA PEDIS
     Dosage: UNK UKN, BID
     Route: 061
     Dates: end: 20060916

REACTIONS (9)
  - Abasia [Unknown]
  - Foot deformity [Not Recovered/Not Resolved]
  - Application site erosion [Unknown]
  - Application site irritation [Unknown]
  - Application site hypersensitivity [Unknown]
  - Application site erythema [Unknown]
  - Application site pain [Unknown]
  - Overdose [Unknown]
  - Medication error [Unknown]
